FAERS Safety Report 7054707-0 (Version None)
Quarter: 2010Q4

REPORT INFORMATION
  Report Type: 
  Country: None (occurrence: None)
  Receive Date: 20101015
  Receipt Date: 20101012
  Transmission Date: 20110411
  Serious: Yes (Disabling)
  Sender: FDA-Public Use
  Company Number: LOC-00772

PATIENT
  Age: 83 Year
  Sex: Male

DRUGS (2)
  1. LOCOID LIPOCREAM [Suspect]
     Indication: RASH
     Dosage: APPLIED TO SCALP AND FOREHEAD BEFORE BED
  2. CHOLESTEROL MEDICATION [Concomitant]

REACTIONS (6)
  - BLISTER [None]
  - EYE DISCHARGE [None]
  - EYELID OEDEMA [None]
  - SKIN DISCOLOURATION [None]
  - URTICARIA [None]
  - VISION BLURRED [None]
